FAERS Safety Report 4726138-7 (Version None)
Quarter: 2005Q3

REPORT INFORMATION
  Report Type: 
  Country: None (occurrence: None)
  Receive Date: 20050725
  Receipt Date: 20050712
  Transmission Date: 20060218
  Serious: Yes (Hospitalization, Disabling)
  Sender: FDA-Public Use
  Company Number: 2005098894

PATIENT
  Age: 61 Year
  Sex: Male
  Weight: 88 kg

DRUGS (1)
  1. VIAGRA [Suspect]
     Indication: ERECTILE DYSFUNCTION
     Dosage: (50 MG), ORAL
     Route: 048
     Dates: start: 20030101, end: 20050101

REACTIONS (1)
  - CEREBROVASCULAR ACCIDENT [None]
